FAERS Safety Report 4611792-0 (Version None)
Quarter: 2005Q2

REPORT INFORMATION
  Report Type: 
  Country: None (occurrence: None)
  Receive Date: 20050308
  Receipt Date: 20041201
  Transmission Date: 20051028
  Serious: Yes (Other)
  Sender: FDA-Public Use
  Company Number: 2004UW24635

PATIENT
  Age: 54 Year
  Sex: Male
  Weight: 63.502 kg

DRUGS (4)
  1. CRESTOR [Suspect]
     Indication: BLOOD CHOLESTEROL INCREASED
     Dosage: 10 MG PO
     Route: 048
  2. SYNTHROID [Concomitant]
  3. ZETIA [Concomitant]
  4. ATARAX [Concomitant]

REACTIONS (5)
  - CHEST PAIN [None]
  - NECK PAIN [None]
  - OEDEMA MOUTH [None]
  - SWELLING FACE [None]
  - URTICARIA [None]
